FAERS Safety Report 18677809 (Version 1)
Quarter: 2020Q4

REPORT INFORMATION
  Report Type: Spontaneous
  Country: GB (occurrence: GB)
  Receive Date: 20201229
  Receipt Date: 20201229
  Transmission Date: 20210114
  Serious: Yes (Other)
  Sender: FDA-Public Use
  Company Number: GB-TEVA-2020-GB-1862534

PATIENT
  Age: 58 Year
  Sex: Male

DRUGS (23)
  1. TINZAPARIN SODIUM [Concomitant]
     Active Substance: TINZAPARIN SODIUM
  2. NOREPINEPHRINE. [Concomitant]
     Active Substance: NOREPINEPHRINE
  3. AMITRIPTYLINE HYDROCHLORIDE. [Concomitant]
     Active Substance: AMITRIPTYLINE HYDROCHLORIDE
  4. APIXABAN [Concomitant]
     Active Substance: APIXABAN
  5. ALFENTANIL HYDROCHLORIDE. [Concomitant]
     Active Substance: ALFENTANIL HYDROCHLORIDE
  6. TAZOCIN [Concomitant]
     Active Substance: PIPERACILLIN SODIUM\TAZOBACTAM SODIUM
  7. VORICONAZOLE. [Suspect]
     Active Substance: VORICONAZOLE
     Dosage: UNIT DOSE :  800 MG
     Route: 042
     Dates: start: 20201126, end: 20201202
  8. HYDROCORTISONE. [Concomitant]
     Active Substance: HYDROCORTISONE
  9. CASSIA [Concomitant]
  10. LAXIDO [Concomitant]
     Active Substance: POLYETHYLENE GLYCOL 3350\POTASSIUM CHLORIDE\SODIUM BICARBONATE\SODIUM CHLORIDE
  11. DOCUSATE [Concomitant]
     Active Substance: DOCUSATE
  12. MIDAZOLAM. [Concomitant]
     Active Substance: MIDAZOLAM
  13. FEBUXOSTAT. [Concomitant]
     Active Substance: FEBUXOSTAT
  14. MEROPENEM TRIHYDRATE [Concomitant]
     Active Substance: MEROPENEM
  15. DEXAMETHASONE. [Concomitant]
     Active Substance: DEXAMETHASONE
  16. PORCINE ACTRAPID [Concomitant]
  17. CISATRACURIUM. [Concomitant]
     Active Substance: CISATRACURIUM
  18. MELATONIN [Concomitant]
     Active Substance: MELATONIN
  19. METOCLOPRAMIDE HYDROCHLORIDE. [Concomitant]
     Active Substance: METOCLOPRAMIDE HYDROCHLORIDE
  20. PROPOFOL. [Concomitant]
     Active Substance: PROPOFOL
  21. LANSOPRAZOLE. [Concomitant]
     Active Substance: LANSOPRAZOLE
  22. BACLOFEN. [Concomitant]
     Active Substance: BACLOFEN
  23. NALOXEGOL [Concomitant]
     Active Substance: NALOXEGOL

REACTIONS (1)
  - Myositis [Recovering/Resolving]

NARRATIVE: CASE EVENT DATE: 20201129
